FAERS Safety Report 5317990-5 (Version None)
Quarter: 2007Q2

REPORT INFORMATION
  Report Type: 
  Country: None (occurrence: None)
  Receive Date: 20070504
  Receipt Date: 20070504
  Transmission Date: 20071010
  Serious: Yes (Hospitalization)
  Sender: FDA-Public Use
  Company Number: None

PATIENT
  Age: 82 Year
  Sex: Male
  Weight: 73.0291 kg

DRUGS (2)
  1. WARFARIN SODIUM [Suspect]
     Indication: AORTIC VALVE REPLACEMENT
     Dosage: 3 MG DAILY PO
     Route: 048
     Dates: start: 19930101, end: 20061214
  2. SALSALATE [Suspect]
     Dosage: 750 MG BID PO
     Route: 048
     Dates: start: 20070101, end: 20070102

REACTIONS (1)
  - SUBDURAL HAEMATOMA [None]
